FAERS Safety Report 19197817 (Version 1)
Quarter: 2021Q2

REPORT INFORMATION
  Report Type: Spontaneous
  Country: US (occurrence: US)
  Receive Date: 20210430
  Receipt Date: 20210430
  Transmission Date: 20210717
  Serious: Yes (Hospitalization, Other)
  Sender: FDA-Public Use
  Company Number: US-SA-2021SA137269

PATIENT
  Age: 7 Year
  Sex: Female

DRUGS (1)
  1. RASBURICASE [Suspect]
     Active Substance: RASBURICASE
     Indication: TUMOUR LYSIS SYNDROME
     Dosage: UNK

REACTIONS (4)
  - Cardiac arrest [Recovered/Resolved]
  - Hyperkalaemia [Recovered/Resolved]
  - Tumour lysis syndrome [Recovered/Resolved]
  - Drug ineffective [Recovered/Resolved]
